FAERS Safety Report 18527236 (Version 2)
Quarter: 2020Q4

REPORT INFORMATION
  Report Type: Spontaneous
  Country: DE (occurrence: DE)
  Receive Date: 20201120
  Receipt Date: 20201201
  Transmission Date: 20210114
  Serious: Yes (Life-Threatening, Other)
  Sender: FDA-Public Use
  Company Number: DE-SA-2020SA328131

PATIENT

DRUGS (1)
  1. AUBAGIO [Suspect]
     Active Substance: TERIFLUNOMIDE
     Indication: MULTIPLE SCLEROSIS
     Dosage: 14 MG, QD
     Dates: start: 20140206, end: 20200301

REACTIONS (1)
  - Breast cancer [Recovering/Resolving]

NARRATIVE: CASE EVENT DATE: 20200301
